FAERS Safety Report 4517321-4 (Version None)
Quarter: 2004Q4

REPORT INFORMATION
  Report Type: 
  Country: None (occurrence: None)
  Receive Date: 20041008
  Receipt Date: 20040408
  Transmission Date: 20050328
  Serious: Yes (Hospitalization)
  Sender: FDA-Public Use
  Company Number: 23661

PATIENT
  Age: 9 Year
  Sex: Male

DRUGS (5)
  1. MAXAIR [Suspect]
     Indication: ASTHMA
     Dosage: 200 MCG, 2 AS NECESSARY, RESPIRATORY (INHALATION)
     Route: 055
     Dates: start: 20010101
  2. ALBUTEROL [Suspect]
  3. CROMOLYN SODIUM [Suspect]
  4. IMMUNOTHERAPY [Suspect]
  5. BIAXIN [Concomitant]

REACTIONS (1)
  - ASTHMA [None]
